FAERS Safety Report 18601848 (Version 1)
Quarter: 2020Q4

REPORT INFORMATION
  Report Type: Spontaneous
  Country: US (occurrence: US)
  Receive Date: 20201210
  Receipt Date: 20201210
  Transmission Date: 20210114
  Serious: No
  Sender: FDA-Public Use
  Company Number: US-009507513-2012USA004280

PATIENT
  Sex: Female
  Weight: 81.91 kg

DRUGS (2)
  1. HYZAAR [Suspect]
     Active Substance: HYDROCHLOROTHIAZIDE\LOSARTAN POTASSIUM
     Indication: HYPERTENSION
     Dosage: 1 TABLET
     Route: 048
  2. HYZAAR [Suspect]
     Active Substance: HYDROCHLOROTHIAZIDE\LOSARTAN POTASSIUM
     Dosage: HALF TABLET
     Route: 048

REACTIONS (3)
  - Wrong technique in product usage process [Unknown]
  - Muscle spasms [Recovered/Resolved]
  - Therapeutic response unexpected [Unknown]
